FAERS Safety Report 8405786-7 (Version None)
Quarter: 2012Q2

REPORT INFORMATION
  Report Type: 
  Country: None (occurrence: None)
  Receive Date: 20120604
  Receipt Date: 20120601
  Transmission Date: 20120825
  Serious: Yes (Other)
  Sender: FDA-Public Use
  Company Number: US-PFIZER INC-2012132707

PATIENT
  Sex: Female
  Weight: 61.224 kg

DRUGS (3)
  1. FLOVENT [Concomitant]
     Indication: LUNG NEOPLASM
     Dosage: 250 MG, 2X/DAY
     Route: 055
  2. VITAMIN D [Concomitant]
     Indication: VITAMIN D DECREASED
     Dosage: UNK
  3. CHANTIX [Suspect]
     Indication: SMOKING CESSATION THERAPY
     Dosage: UNK
     Route: 048
     Dates: start: 20090101, end: 20090101

REACTIONS (8)
  - DIZZINESS [None]
  - ABNORMAL DREAMS [None]
  - NAUSEA [None]
  - PHOTOPHOBIA [None]
  - FEELING ABNORMAL [None]
  - DYSPNOEA [None]
  - ABDOMINAL PAIN UPPER [None]
  - ABNORMAL BEHAVIOUR [None]
